FAERS Safety Report 4379914-7 (Version None)
Quarter: 2004Q2

REPORT INFORMATION
  Report Type: 
  Country: None (occurrence: None)
  Receive Date: 20040615
  Receipt Date: 20040602
  Transmission Date: 20050107
  Serious: Yes (Other)
  Sender: FDA-Public Use
  Company Number: 2004-DE-03163GD

PATIENT
  Age: 76 Year
  Sex: Female
  Weight: 80 kg

DRUGS (9)
  1. MORPHINE SULFATE [Suspect]
     Indication: NEUROPATHY
     Dosage: 30 MG (NR), NR
  2. ACETAMINOPHEN AND CODEINE PHOSPHATE [Suspect]
     Indication: NEUROPATHY
     Dosage: NR (NR, 4-6 TABLETS DAILY), NR
  3. AMITRIPTYLINE HCL [Suspect]
     Indication: NEUROPATHY
     Dosage: 75 MG (NR, AT NIGHT), NR
  4. GABAPENTIN [Concomitant]
  5. HYDROCHLOROTHIAZIDE (HYDROCHOROTHIAZIDE) [Concomitant]
  6. IRBESARTAN (IRBESARTAN) [Concomitant]
  7. RABEPRAZOLE SODIUM [Concomitant]
  8. VITAMIN B COMPLEX (B-KOMPLEX ^LECIVA^) [Concomitant]
  9. DOCUSATE SODIUM (DOCUSATE SODIUM) [Concomitant]

REACTIONS (4)
  - CONSTIPATION [None]
  - DIABETES MELLITUS [None]
  - DRUG EFFECT DECREASED [None]
  - DRY MOUTH [None]
